FAERS Safety Report 8286791-0 (Version None)
Quarter: 2012Q2

REPORT INFORMATION
  Report Type: 
  Country: None (occurrence: None)
  Receive Date: 20120416
  Receipt Date: 20120405
  Transmission Date: 20120825
  Serious: Yes (Death, Hospitalization)
  Sender: FDA-Public Use
  Company Number: FR-NOVOPROD-334599

PATIENT
  Age: 54 Year
  Sex: Male

DRUGS (2)
  1. NOVOSEVEN [Suspect]
     Indication: LIVER TRANSPLANT
     Dosage: IV
     Route: 042
     Dates: start: 20110222, end: 20110223
  2. DOBUTAMINE HCL [Concomitant]

REACTIONS (4)
  - CARDIOGENIC SHOCK [None]
  - ATRIOVENTRICULAR BLOCK COMPLETE [None]
  - MYOCARDIAL ISCHAEMIA [None]
  - BRADYCARDIA [None]
